FAERS Safety Report 6428682-3 (Version None)
Quarter: 2009Q4

REPORT INFORMATION
  Report Type: 
  Country: None (occurrence: None)
  Receive Date: 20091105
  Receipt Date: 20091027
  Transmission Date: 20100525
  Serious: Yes (Hospitalization)
  Sender: FDA-Public Use
  Company Number: CN-JNJFOC-20090906533

PATIENT
  Age: 40 Year
  Sex: Female

DRUGS (4)
  1. RISPERDAL [Suspect]
     Dosage: 1 MG AM AND 1.5MG PM
     Route: 048
  2. RISPERDAL [Suspect]
     Route: 048
  3. RISPERDAL [Suspect]
     Indication: SCHIZOPHRENIA
     Route: 048
  4. CHINESE TRADITIONAL MEDICINE [Concomitant]
     Indication: BREAST HYPERPLASIA
     Route: 065

REACTIONS (5)
  - BLOOD PROLACTIN INCREASED [None]
  - BREAST HYPERPLASIA [None]
  - MENSTRUAL DISORDER [None]
  - MENSTRUATION DELAYED [None]
  - SWELLING FACE [None]
